FAERS Safety Report 10233827 (Version 1)
Quarter: 2014Q2

REPORT INFORMATION
  Report Type: Spontaneous
  Country: IT (occurrence: IT)
  Receive Date: 20140612
  Receipt Date: 20140612
  Transmission Date: 20141212
  Serious: Yes (Hospitalization)
  Sender: FDA-Public Use
  Company Number: IT-BAYER-2014-083928

PATIENT
  Age: 48 Year
  Sex: Female

DRUGS (4)
  1. ASPIRINA [Suspect]
     Indication: DRUG ABUSE
     Dosage: 3 DF, ONCE
     Route: 048
     Dates: start: 20131212, end: 20131212
  2. XANAX [Suspect]
     Indication: DRUG ABUSE
     Dosage: 20 ML, ONCE
     Route: 048
     Dates: start: 20131212, end: 20131212
  3. ENTACT [Suspect]
     Indication: DRUG ABUSE
     Dosage: 15 ML, ONCE
     Route: 048
     Dates: start: 20131212, end: 20131212
  4. ANAFRANIL [Suspect]
     Indication: DRUG ABUSE
     Dosage: 3 DF, ONCE
     Route: 048
     Dates: start: 20131212, end: 20131212

REACTIONS (3)
  - Psychomotor hyperactivity [Recovered/Resolved]
  - Abdominal pain upper [Recovered/Resolved]
  - Drug abuse [Recovered/Resolved]
